FAERS Safety Report 9204059 (Version 3)
Quarter: 2013Q2

REPORT INFORMATION
  Report Type: Report from Study
  Country: BO (occurrence: BO)
  Receive Date: 20130402
  Receipt Date: 20130416
  Transmission Date: 20140414
  Serious: Yes (Death, Hospitalization)
  Sender: FDA-Public Use
  Company Number: PHHY2012BO070193

PATIENT
  Age: 55 Year
  Sex: Female

DRUGS (3)
  1. GLIVEC [Suspect]
     Indication: CHRONIC MYELOID LEUKAEMIA
     Dosage: 400 MG, DAILY
     Route: 048
     Dates: start: 20050123
  2. GLIVEC [Suspect]
     Dosage: 400 MG, DAILY
     Route: 048
     Dates: start: 20130123
  3. GLIVEC [Suspect]
     Dosage: 600 UNK, UNK

REACTIONS (9)
  - Pulmonary sepsis [Fatal]
  - Blast crisis in myelogenous leukaemia [Fatal]
  - Respiratory failure [Fatal]
  - Chronic myeloid leukaemia [Recovering/Resolving]
  - Drug intolerance [Recovered/Resolved]
  - Drug ineffective [Recovered/Resolved]
  - Asthenia [Recovered/Resolved]
  - Pyrexia [Recovered/Resolved]
  - Myalgia [Recovered/Resolved]
